FAERS Safety Report 23825373 (Version 1)
Quarter: 2024Q2

REPORT INFORMATION
  Report Type: Spontaneous
  Country: US (occurrence: US)
  Receive Date: 20240507
  Receipt Date: 20240507
  Transmission Date: 20240715
  Serious: Yes (Other)
  Sender: FDA-Public Use
  Company Number: US-CELLTRION INC.-2024US010097

PATIENT

DRUGS (6)
  1. INFLIXIMAB [Suspect]
     Active Substance: INFLIXIMAB
     Indication: Crohn^s disease
     Dosage: 5 MG/KG (INDUCTION THERAPY)
  2. INFLIXIMAB [Suspect]
     Active Substance: INFLIXIMAB
     Dosage: 7.5 MG/KG (HIGHER DOSE)
  3. INFLIXIMAB [Suspect]
     Active Substance: INFLIXIMAB
     Dosage: 15 MG/KG, EVERY 4 WEEKS
  4. INFLIXIMAB [Suspect]
     Active Substance: INFLIXIMAB
     Dosage: 10 MG/KG, EVERY 6 WEEKS (STEPWISE DECREASED)
  5. INFLIXIMAB [Suspect]
     Active Substance: INFLIXIMAB
     Dosage: 10 MG/KG, EVERY 4 WEEKS
  6. SULFASALAZINE [Concomitant]
     Active Substance: SULFASALAZINE

REACTIONS (4)
  - Clostridium difficile infection [Unknown]
  - COVID-19 [Unknown]
  - Therapy non-responder [Unknown]
  - Intentional product use issue [Unknown]
